FAERS Safety Report 5743263-2 (Version None)
Quarter: 2008Q2

REPORT INFORMATION
  Report Type: 
  Country: None (occurrence: None)
  Receive Date: 20080519
  Receipt Date: 20080507
  Transmission Date: 20081010
  Serious: Yes (Hospitalization)
  Sender: FDA-Public Use
  Company Number: FR-PFIZER INC-2006020714

PATIENT
  Sex: Male
  Weight: 62 kg

DRUGS (1)
  1. SU-011,248 [Suspect]
     Indication: RENAL CELL CARCINOMA
     Route: 048
     Dates: start: 20060123, end: 20060129

REACTIONS (4)
  - HYPERBILIRUBINAEMIA [None]
  - HYPONATRAEMIA [None]
  - PROTEINURIA [None]
  - PYREXIA [None]
